FAERS Safety Report 10908377 (Version 5)
Quarter: 2020Q1

REPORT INFORMATION
  Report Type: Report from Study
  Country: US (occurrence: US)
  Receive Date: 20150312
  Receipt Date: 20200205
  Transmission Date: 20200409
  Serious: Yes (Hospitalization, Other)
  Sender: FDA-Public Use
  Company Number: US-SA-2014SA076634

PATIENT
  Age: 50 Year
  Sex: Female

DRUGS (6)
  1. SIMVASTATIN. [Concomitant]
     Active Substance: SIMVASTATIN
  2. VITAMIN D [ERGOCALCIFEROL] [Concomitant]
     Active Substance: ERGOCALCIFEROL
  3. TERIFLUNOMIDE. [Suspect]
     Active Substance: TERIFLUNOMIDE
     Indication: MULTIPLE SCLEROSIS
     Dosage: 14 MG,QD
     Route: 048
     Dates: start: 20140520
  4. TERIFLUNOMIDE. [Suspect]
     Active Substance: TERIFLUNOMIDE
     Dosage: 14 MG,QD
     Route: 048
  5. FISH OIL [Concomitant]
     Active Substance: FISH OIL
  6. DULOXETINE. [Concomitant]
     Active Substance: DULOXETINE

REACTIONS (14)
  - Feeling hot [Recovered/Resolved]
  - Back pain [Unknown]
  - Parathyroid gland operation [Unknown]
  - Erythema [Recovered/Resolved]
  - Blood calcium increased [Unknown]
  - Memory impairment [Unknown]
  - Gait disturbance [Unknown]
  - Asthenia [Unknown]
  - Alopecia [Not Recovered/Not Resolved]
  - Nephrolithiasis [Unknown]
  - Burning sensation [Recovered/Resolved]
  - Crying [Unknown]
  - Secondary progressive multiple sclerosis [Unknown]
  - Depression [Unknown]

NARRATIVE: CASE EVENT DATE: 201411
